FAERS Safety Report 5264581-0 (Version None)
Quarter: 2007Q1

REPORT INFORMATION
  Report Type: 
  Country: None (occurrence: None)
  Receive Date: 20070314
  Receipt Date: 20070306
  Transmission Date: 20070707
  Serious: Yes (Death, Other)
  Sender: FDA-Public Use
  Company Number: JP-BRISTOL-MYERS SQUIBB COMPANY-13680988

PATIENT
  Age: 7 Year
  Sex: Male

DRUGS (3)
  1. ENDOXAN [Suspect]
     Indication: MALIGNANT MEDIASTINAL NEOPLASM
     Route: 048
     Dates: end: 19950720
  2. VINCRISTINE SULFATE [Suspect]
     Indication: MALIGNANT MEDIASTINAL NEOPLASM
     Dates: end: 19950720
  3. PIRARUBICIN HCL [Suspect]
     Indication: NEUROBLASTOMA
     Route: 042
     Dates: start: 19950720, end: 19950720

REACTIONS (2)
  - LUNG NEOPLASM MALIGNANT [None]
  - RESPIRATORY FAILURE [None]
